FAERS Safety Report 10620020 (Version 1)
Quarter: 2014Q4

REPORT INFORMATION
  Report Type: Spontaneous
  Country: US (occurrence: US)
  Receive Date: 20141202
  Receipt Date: 20141202
  Transmission Date: 20150529
  Serious: No
  Sender: FDA-Public Use
  Company Number: US-GLAXOSMITHKLINE-US2014GSK029246

PATIENT
  Age: 83 Year
  Sex: Female

DRUGS (3)
  1. ADVAIR DISKUS [Suspect]
     Active Substance: FLUTICASONE PROPIONATE\SALMETEROL XINAFOATE
     Indication: ASTHMA
     Dosage: 1 PUFF(S), PRN
     Route: 055
     Dates: start: 1999, end: 201408
  2. THYROID TABLET [Concomitant]
  3. ATIVAN [Concomitant]
     Active Substance: LORAZEPAM

REACTIONS (6)
  - Glossodynia [Recovering/Resolving]
  - Dry mouth [Unknown]
  - Candida infection [Recovering/Resolving]
  - Oral pain [Not Recovered/Not Resolved]
  - Oropharyngeal pain [Recovering/Resolving]
  - Tongue discolouration [Recovering/Resolving]

NARRATIVE: CASE EVENT DATE: 201406
